FAERS Safety Report 7488640-7 (Version None)
Quarter: 2011Q2

REPORT INFORMATION
  Report Type: 
  Country: None (occurrence: None)
  Receive Date: 20110518
  Receipt Date: 20101130
  Transmission Date: 20111010
  Serious: Yes (Hospitalization)
  Sender: FDA-Public Use
  Company Number: A0898683A

PATIENT
  Age: 66 Year
  Sex: Male

DRUGS (2)
  1. AVANDAMET [Suspect]
     Indication: DIABETES MELLITUS
     Route: 048
     Dates: start: 20051003, end: 20070723
  2. AVANDIA [Suspect]
     Route: 048

REACTIONS (2)
  - ANGINA UNSTABLE [None]
  - ARTERIOSCLEROSIS [None]
